FAERS Safety Report 9909514 (Version 2)
Quarter: 2014Q1

REPORT INFORMATION
  Report Type: Spontaneous
  Country: US (occurrence: US)
  Receive Date: 20140219
  Receipt Date: 20140219
  Transmission Date: 20141002
  Serious: No
  Sender: FDA-Public Use
  Company Number: US-GILEAD-2012-0056359

PATIENT
  Sex: Female

DRUGS (14)
  1. LETAIRIS [Suspect]
     Indication: PULMONARY HYPERTENSION
     Dosage: 5 MG, UNK
     Route: 048
     Dates: start: 20120530, end: 20120601
  2. LETAIRIS [Suspect]
     Indication: CHRONIC OBSTRUCTIVE PULMONARY DISEASE
  3. LETAIRIS [Suspect]
     Indication: SLEEP APNOEA SYNDROME
  4. CITALOPRAM HYDROBROMIDE [Concomitant]
  5. DILTIAZEM HYDROCHLORIDE [Concomitant]
  6. METOPROLOL SUCCINATE [Concomitant]
  7. DUONEB [Concomitant]
  8. IPRATROPIUM BROMIDE [Concomitant]
  9. XOPENEX [Concomitant]
  10. IMDUR [Concomitant]
  11. OXYGEN [Concomitant]
  12. ALTACE [Concomitant]
  13. WARFARIN SODIUM [Concomitant]
  14. LASIX                              /00032601/ [Concomitant]

REACTIONS (1)
  - Hypotension [Unknown]
